FAERS Safety Report 9126793 (Version 1)
Quarter: 2013Q1

REPORT INFORMATION
  Report Type: Spontaneous
  Country: None (occurrence: US)
  Receive Date: 20130228
  Receipt Date: 20130228
  Transmission Date: 20140127
  Serious: Yes (Other)
  Sender: FDA-Public Use
  Company Number: US-BRISTOL-MYERS SQUIBB COMPANY-15701402

PATIENT
  Age: 75 Year
  Sex: Female

DRUGS (1)
  1. RECOTHROM [Suspect]
     Indication: VASCULAR PSEUDOANEURYSM

REACTIONS (1)
  - Drug ineffective [Unknown]
